FAERS Safety Report 19169494 (Version 1)
Quarter: 2021Q2

REPORT INFORMATION
  Report Type: Spontaneous
  Country: US (occurrence: US)
  Receive Date: 20210422
  Receipt Date: 20210422
  Transmission Date: 20210717
  Serious: No
  Sender: FDA-Public Use
  Company Number: US-FRESENIUS KABI-FK202104026

PATIENT
  Sex: Male

DRUGS (1)
  1. LACTULOSE 10 G/ 15 ML [Suspect]
     Active Substance: LACTULOSE
     Indication: CONSTIPATION
     Dosage: LACTULOSE ORAL SOLUTION (CONSTULOSE) (10 G/15 ML)
     Route: 065

REACTIONS (4)
  - Malaise [Recovered/Resolved]
  - Product substitution issue [Unknown]
  - Feeding disorder [Recovered/Resolved]
  - Diarrhoea [Recovered/Resolved]
